FAERS Safety Report 7328367 (Version 2)
Quarter: 2013Q2

REPORT INFORMATION
  Report Type: Spontaneous
  Country: US (occurrence: US)
  Receive Date: 20100323
  Receipt Date: 20130606
  Transmission Date: 20140414
  Serious: Yes (Hospitalization)
  Sender: FDA-Public Use
  Company Number: US-BAYER-201017014NA

PATIENT
  Age: 31 Year
  Sex: Female
  Weight: 60.77 kg

DRUGS (6)
  1. YASMIN [Suspect]
     Dosage: UNK
     Dates: start: 2003, end: 200707
  2. TOPROL [Concomitant]
     Indication: CHEST PAIN
     Dosage: 12.5 MG, UNK
     Dates: start: 2003, end: 2007
  3. PROMANTINE [Concomitant]
     Dosage: 5 MG, UNK
  4. FLEXERIL [Concomitant]
     Dosage: 10 MG, UNK
  5. DOXYCYCLINE [Concomitant]
     Dosage: 100 MG, UNK
  6. LYSINE [Concomitant]
     Dosage: 1000 MG, UNK
     Route: 048

REACTIONS (5)
  - Pulmonary embolism [Recovered/Resolved]
  - Deep vein thrombosis [Recovered/Resolved]
  - Thrombosis [None]
  - Hypertrichosis [None]
  - Alopecia [None]
